FAERS Safety Report 8853485 (Version 1)
Quarter: 2012Q4

REPORT INFORMATION
  Report Type: 
  Country: US (occurrence: US)
  Receive Date: 20121022
  Receipt Date: 20121022
  Transmission Date: 20130627
  Serious: Yes (Other)
  Sender: FDA-Public Use
  Company Number: US-BAYER-2012-109871

PATIENT
  Age: 70 Year
  Sex: Female
  Weight: 115 kg

DRUGS (31)
  1. TRASYLOL [Suspect]
     Indication: CORONARY ARTERY BYPASS
     Dosage: Test dose: 1mL; 2million units pump prime
     Dates: start: 20050128
  2. TRASYLOL [Suspect]
     Indication: CORONARY ARTERY BYPASS
     Dosage: Loading dose: 200mL load followed by 50mL/hr continuous infusion
     Dates: start: 20050128
  3. ACETYLSALICYLIC ACID (} 100 MG) [Concomitant]
  4. GLYBURIDE [Concomitant]
  5. DOPAMINE [Concomitant]
  6. DOPAMINE [Concomitant]
     Dosage: UNK
     Dates: start: 20050128
  7. ELAVIL [Concomitant]
  8. PREVACID [Concomitant]
  9. LASIX [Concomitant]
  10. COREG [Concomitant]
  11. NITROGLYCERIN [Concomitant]
  12. NITROGLYCERIN [Concomitant]
     Dosage: UNK
     Dates: start: 20050128
  13. AVANDIA [Concomitant]
  14. VASOTEC [Concomitant]
  15. INSULIN [Concomitant]
  16. DIGOXIN [Concomitant]
  17. SEVOFLURANE [Concomitant]
     Dosage: UNK
     Dates: start: 20050128
  18. VERSED [Concomitant]
     Dosage: UNK
     Dates: start: 20050128
  19. SOTALOL [Concomitant]
     Dosage: UNK
     Dates: start: 20050128
  20. PAVULON [Concomitant]
     Dosage: UNK
     Dates: start: 20050128
  21. EPINEPHRINE [Concomitant]
     Dosage: UNK
     Dates: start: 20050128
  22. LIDOCAINE [Concomitant]
     Dosage: UNK
     Dates: start: 20050128
  23. CALCIUM CHLORIDE [Concomitant]
     Dosage: UNK
     Dates: start: 20050128
  24. PROTAMINE [Concomitant]
     Dosage: UNK
     Dates: start: 20050128
  25. HEPARIN [Concomitant]
     Dosage: Pump Prime
     Dates: start: 20050128
  26. SODIUM BICARBONATE [Concomitant]
     Dosage: Pump prime
     Dates: start: 20050128
  27. MANNITOL [Concomitant]
     Dosage: Pump prime
     Dates: start: 20050128
  28. POTASSIUM CHLORIDE [Concomitant]
     Dosage: UNK
     Dates: start: 20050128
  29. PLATELETS, HUMAN BLOOD [Concomitant]
     Dosage: UNK
     Dates: start: 20050128
  30. PACKED RED BLOOD CELLS [Concomitant]
     Dosage: UNK
     Dates: start: 20050128
  31. CELL SAVER [Concomitant]
     Dosage: UNK
     Dates: start: 20050128

REACTIONS (2)
  - Renal failure acute [None]
  - Renal failure chronic [None]
